FAERS Safety Report 7008773-9 (Version None)
Quarter: 2010Q3

REPORT INFORMATION
  Report Type: 
  Country: None (occurrence: None)
  Receive Date: 20100921
  Receipt Date: 20100806
  Transmission Date: 20110219
  Serious: Yes (Death)
  Sender: FDA-Public Use
  Company Number: CV20100497

PATIENT
  Age: 42 Year
  Sex: Male

DRUGS (2)
  1. CLINDAMYCIN [Suspect]
     Indication: BRONCHITIS
     Dosage: 1.2 GM INTRAVENOUS (NOT OTHERWISE SPECIFIED)
     Route: 042
  2. DEXAMETHASONE [Concomitant]

REACTIONS (3)
  - ASPHYXIA [None]
  - LARYNGEAL OEDEMA [None]
  - RESPIRATORY FAILURE [None]
